FAERS Safety Report 6158542-7 (Version None)
Quarter: 2009Q2

REPORT INFORMATION
  Report Type: 
  Country: None (occurrence: None)
  Receive Date: 20090417
  Receipt Date: 20090416
  Transmission Date: 20091009
  Serious: Yes (Other)
  Sender: FDA-Public Use
  Company Number: PHEH2007US01592

PATIENT
  Sex: Female
  Weight: 62.131 kg

DRUGS (1)
  1. ELIDEL [Suspect]
     Indication: DERMATITIS
     Route: 061
     Dates: start: 20030101

REACTIONS (11)
  - DYSPNOEA [None]
  - GASTRITIS [None]
  - HERPES ZOSTER [None]
  - LUNG NEOPLASM [None]
  - MEDIASTINAL MASS [None]
  - NIGHT SWEATS [None]
  - PANIC ATTACK [None]
  - PLEURITIC PAIN [None]
  - PRIMARY MEDIASTINAL LARGE B-CELL LYMPHOMA STAGE II [None]
  - STRESS ULCER [None]
  - WEIGHT DECREASED [None]
